FAERS Safety Report 6156801-5 (Version None)
Quarter: 2009Q2

REPORT INFORMATION
  Report Type: 
  Country: None (occurrence: None)
  Receive Date: 20090416
  Receipt Date: 20090413
  Transmission Date: 20091009
  Serious: Yes (Death, Other)
  Sender: FDA-Public Use
  Company Number: PHHY2009MX12551

PATIENT
  Age: 74 Year
  Sex: Female

DRUGS (1)
  1. DIOVAN HCT [Suspect]
     Indication: HYPERTENSION
     Dosage: 160/12.5 MG PER DAY
     Route: 048
     Dates: start: 20070601

REACTIONS (3)
  - ACCIDENT [None]
  - CARDIAC DISORDER [None]
  - MYOCARDIAL INFARCTION [None]
